FAERS Safety Report 5636029-5 (Version None)
Quarter: 2008Q1

REPORT INFORMATION
  Report Type: 
  Country: None (occurrence: None)
  Receive Date: 20080220
  Receipt Date: 20080220
  Transmission Date: 20080703
  Serious: Yes (Life-Threatening, Hospitalization)
  Sender: FDA-Public Use
  Company Number: None

PATIENT
  Age: 44 Year
  Sex: Male
  Weight: 90.7194 kg

DRUGS (2)
  1. TRASYLOL [Suspect]
     Indication: OPERATIVE HAEMORRHAGE
     Dates: start: 20040504, end: 20040504
  2. TRASYLOL [Suspect]
     Indication: OPERATIVE HAEMORRHAGE
     Dates: start: 20050925, end: 20050925

REACTIONS (4)
  - IMMUNE SYSTEM DISORDER [None]
  - MYOCARDIAL INFARCTION [None]
  - ORGAN FAILURE [None]
  - SEPTIC SHOCK [None]
